FAERS Safety Report 21139259 (Version 1)
Quarter: 2022Q3

REPORT INFORMATION
  Report Type: Spontaneous
  Country: US (occurrence: US)
  Receive Date: 20220727
  Receipt Date: 20220727
  Transmission Date: 20221026
  Serious: No
  Sender: FDA-Public Use
  Company Number: US-ELI_LILLY_AND_COMPANY-US202207007184

PATIENT
  Age: 57 Year
  Sex: Female

DRUGS (1)
  1. BEBTELOVIMAB [Suspect]
     Active Substance: BEBTELOVIMAB
     Indication: COVID-19
     Dosage: UNK UNK, UNKNOWN
     Route: 065
     Dates: start: 20220709

REACTIONS (8)
  - Productive cough [Unknown]
  - Dysphonia [Unknown]
  - Ear pruritus [Unknown]
  - Cough [Unknown]
  - Ear pain [Unknown]
  - Nasal discomfort [Unknown]
  - Headache [Unknown]
  - Chills [Recovered/Resolved]

NARRATIVE: CASE EVENT DATE: 20220712
